FAERS Safety Report 6409629-2 (Version None)
Quarter: 2009Q4

REPORT INFORMATION
  Report Type: 
  Country: None (occurrence: None)
  Receive Date: 20091022
  Receipt Date: 20091009
  Transmission Date: 20100525
  Serious: Yes (Other)
  Sender: FDA-Public Use
  Company Number: US-PFIZER INC-2009282141

PATIENT
  Sex: Female

DRUGS (4)
  1. DILANTIN-125 [Suspect]
     Indication: CONVULSION
     Dosage: UNK
  2. KEPPRA [Suspect]
     Dosage: UNK
  3. COCAINE [Suspect]
     Dosage: UNK
     Dates: end: 20090902
  4. NEXIUM [Concomitant]
     Dosage: UNK

REACTIONS (5)
  - CAESAREAN SECTION [None]
  - DRUG ABUSE [None]
  - DRUG DEPENDENCE [None]
  - DRUG SCREEN POSITIVE [None]
  - VAGINAL HAEMORRHAGE [None]
